FAERS Safety Report 21009163 (Version 4)
Quarter: 2022Q3

REPORT INFORMATION
  Report Type: Spontaneous
  Country: US (occurrence: US)
  Receive Date: 20220627
  Receipt Date: 20220809
  Transmission Date: 20221026
  Serious: Yes (Other)
  Sender: FDA-Public Use
  Company Number: US-JNJFOC-20220640608

PATIENT
  Age: 4 Decade
  Sex: Female

DRUGS (21)
  1. ELMIRON [Suspect]
     Active Substance: PENTOSAN POLYSULFATE SODIUM
     Indication: Cystitis interstitial
     Route: 048
     Dates: start: 2016, end: 202008
  2. ROPINIROLE [Concomitant]
     Active Substance: ROPINIROLE
     Indication: Restless legs syndrome
     Dates: start: 202011, end: 202107
  3. METFORMIN [Concomitant]
     Active Substance: METFORMIN HYDROCHLORIDE
     Indication: Diabetes mellitus
     Dates: start: 2015, end: 201905
  4. METFORMIN [Concomitant]
     Active Substance: METFORMIN HYDROCHLORIDE
     Dates: start: 202005, end: 202104
  5. LISINOPRIL [Concomitant]
     Active Substance: LISINOPRIL
     Indication: Hypertension
     Dates: start: 201802, end: 202105
  6. TRAZODONE [Concomitant]
     Active Substance: TRAZODONE HYDROCHLORIDE
     Indication: Neurotransmitter level altered
     Dates: start: 201802, end: 201802
  7. TRAZODONE [Concomitant]
     Active Substance: TRAZODONE HYDROCHLORIDE
     Dates: start: 201810, end: 201810
  8. TRAZODONE [Concomitant]
     Active Substance: TRAZODONE HYDROCHLORIDE
     Dates: start: 202006, end: 202103
  9. METOCLOPRAMIDE [Concomitant]
     Active Substance: METOCLOPRAMIDE
     Indication: Gastrointestinal motility disorder
     Dates: start: 201907, end: 201909
  10. METOCLOPRAMIDE [Concomitant]
     Active Substance: METOCLOPRAMIDE
     Dates: start: 202004, end: 202007
  11. METOCLOPRAMIDE [Concomitant]
     Active Substance: METOCLOPRAMIDE
     Dates: start: 202106, end: 202106
  12. HYDROXYZINE PAMOATE [Concomitant]
     Active Substance: HYDROXYZINE PAMOATE
     Indication: Antiallergic therapy
     Dates: start: 201810, end: 201812
  13. HYDROXYZINE PAMOATE [Concomitant]
     Active Substance: HYDROXYZINE PAMOATE
     Dates: start: 202009, end: 202108
  14. ESTRADIOL [Concomitant]
     Active Substance: ESTRADIOL
     Indication: Hormone level abnormal
     Dates: start: 201907
  15. DIVALPROEX SODIUM [Concomitant]
     Active Substance: DIVALPROEX SODIUM
     Indication: Bipolar disorder
     Dates: start: 2015
  16. AMLODIPINE [Concomitant]
     Active Substance: AMLODIPINE BESYLATE
     Dates: start: 201802, end: 202107
  17. DULOXETINE [Concomitant]
     Active Substance: DULOXETINE
     Indication: Pain management
     Dates: start: 201812, end: 202104
  18. DULOXETINE [Concomitant]
     Active Substance: DULOXETINE
     Dates: start: 202105
  19. WELCHOL [Concomitant]
     Active Substance: COLESEVELAM HYDROCHLORIDE
     Indication: Blood cholesterol
     Dates: start: 202012, end: 202107
  20. GABAPENTIN [Concomitant]
     Active Substance: GABAPENTIN
     Indication: Restless legs syndrome
     Dates: start: 201803, end: 201906
  21. GABAPENTIN [Concomitant]
     Active Substance: GABAPENTIN
     Dates: start: 201910, end: 202106

REACTIONS (2)
  - Metamorphopsia [Unknown]
  - Retinal pigmentation [Unknown]

NARRATIVE: CASE EVENT DATE: 20200101
